FAERS Safety Report 7864181-X (Version None)
Quarter: 2011Q4

REPORT INFORMATION
  Report Type: 
  Country: None (occurrence: None)
  Receive Date: 20111028
  Receipt Date: 20111025
  Transmission Date: 20120403
  Serious: Yes (Other)
  Sender: FDA-Public Use
  Company Number: US-PFIZER INC-2011260111

PATIENT
  Sex: Female
  Weight: 56.689 kg

DRUGS (6)
  1. SIMVASTATIN [Concomitant]
     Dosage: UNK
  2. SUTENT [Suspect]
     Indication: RENAL CELL CARCINOMA
     Dosage: 37.5 MG, 1X/DAY
     Route: 048
     Dates: start: 20100501, end: 20110101
  3. SUTENT [Suspect]
     Indication: METASTASIS
     Dosage: 50 MG, 1X/DAY
     Route: 048
     Dates: start: 20110101
  4. NORVASC [Concomitant]
     Dosage: UNK
  5. COREG [Concomitant]
     Dosage: UNK
  6. CLONIDINE [Concomitant]
     Dosage: UNK

REACTIONS (2)
  - NEOPLASM MALIGNANT [None]
  - SKIN CANCER [None]
